FAERS Safety Report 5369995-6 (Version None)
Quarter: 2007Q2

REPORT INFORMATION
  Report Type: 
  Country: None (occurrence: None)
  Receive Date: 20070626
  Receipt Date: 20070615
  Transmission Date: 20071010
  Serious: Yes (Hospitalization)
  Sender: FDA-Public Use
  Company Number: PHBS2007JP09959

PATIENT
  Age: 69 Year
  Sex: Female

DRUGS (1)
  1. NATEGLINIDE [Suspect]
     Route: 048

REACTIONS (1)
  - LUNG NEOPLASM MALIGNANT [None]
